FAERS Safety Report 9921191 (Version 2)
Quarter: 2014Q1

REPORT INFORMATION
  Report Type: Spontaneous
  Country: JP (occurrence: JP)
  Receive Date: 20140225
  Receipt Date: 20140310
  Transmission Date: 20141002
  Serious: Yes (Death, Other)
  Sender: FDA-Public Use
  Company Number: JP-ROCHE-1351686

PATIENT
  Age: 72 Year
  Sex: Male
  Weight: 50 kg

DRUGS (3)
  1. XELODA [Suspect]
     Indication: GASTRIC CANCER
     Dosage: 2 WEEKS ADMINISTRATION FOLLOWED BY 1 WEEK REST
     Route: 048
     Dates: start: 20131008, end: 20131021
  2. HERCEPTIN [Suspect]
     Indication: GASTRIC CANCER
     Route: 041
     Dates: start: 20131008, end: 20131008
  3. CISPLATIN [Suspect]
     Indication: GASTRIC CANCER
     Route: 042
     Dates: start: 20131008, end: 20131008

REACTIONS (14)
  - Neutrophil count decreased [Fatal]
  - Sepsis [Fatal]
  - Subarachnoid haemorrhage [Fatal]
  - Endocarditis [Fatal]
  - Circulatory collapse [Fatal]
  - Renal failure [Fatal]
  - Pneumonia [Fatal]
  - White blood cell count decreased [Unknown]
  - Diarrhoea [Unknown]
  - Platelet count decreased [Unknown]
  - Anaemia [Unknown]
  - Gastrointestinal haemorrhage [Unknown]
  - Mycotic endophthalmitis [Not Recovered/Not Resolved]
  - Infective aneurysm [Unknown]
